FAERS Safety Report 17839249 (Version 3)
Quarter: 2020Q4

REPORT INFORMATION
  Report Type: Spontaneous
  Country: US (occurrence: US)
  Receive Date: 20200529
  Receipt Date: 20201015
  Transmission Date: 20210113
  Serious: Yes (Other)
  Sender: FDA-Public Use
  Company Number: US-BLUEPRINT MEDICINES CORPORATION-SP-US-2020-000635

PATIENT
  Sex: Female

DRUGS (2)
  1. AYVAKIT [Suspect]
     Active Substance: AVAPRITINIB
     Indication: GASTROINTESTINAL STROMAL TUMOUR
     Route: 048
     Dates: start: 20200504
  2. AYVAKIT [Suspect]
     Active Substance: AVAPRITINIB
     Route: 048
     Dates: start: 20200504

REACTIONS (30)
  - Palpitations [Unknown]
  - Chromaturia [Unknown]
  - Feeling cold [Unknown]
  - Pharyngeal swelling [Unknown]
  - Gastric ulcer [Unknown]
  - Lip swelling [Unknown]
  - Fatigue [Unknown]
  - Pain [Unknown]
  - Faeces discoloured [Unknown]
  - Tinnitus [Unknown]
  - Hypogeusia [Unknown]
  - Muscular weakness [Unknown]
  - Paraesthesia [Unknown]
  - Decreased appetite [Unknown]
  - Oliguria [Unknown]
  - Eye swelling [Unknown]
  - Hair colour changes [Unknown]
  - Vomiting [Recovered/Resolved]
  - Nausea [Unknown]
  - Dysgeusia [Unknown]
  - Muscle twitching [Unknown]
  - Gastric haemorrhage [Unknown]
  - Abdominal distension [Unknown]
  - Swollen tongue [Unknown]
  - Peripheral swelling [Unknown]
  - Lacrimation increased [Unknown]
  - Asthenia [Unknown]
  - Ascites [Unknown]
  - Eye discharge [Unknown]
  - Saliva altered [Unknown]
